FAERS Safety Report 11690651 (Version 1)
Quarter: 2015Q4

REPORT INFORMATION
  Report Type: Spontaneous
  Country: US (occurrence: US)
  Receive Date: 20151102
  Receipt Date: 20151102
  Transmission Date: 20160304
  Serious: No
  Sender: FDA-Public Use
  Company Number: US-BAYER-2015-452978

PATIENT
  Sex: Female

DRUGS (2)
  1. BETASERON [Suspect]
     Active Substance: INTERFERON BETA-1B
     Dosage: UNK
     Dates: start: 1991
  2. TYLENOL [CHLORPHENAM MAL,DEXTROMET HBR,PARACET,PSEUDOEPH HCL] [Concomitant]
     Indication: PREMEDICATION
     Dosage: UNK

REACTIONS (4)
  - Tremor [Recovered/Resolved]
  - Injection site mass [None]
  - Chills [Recovered/Resolved]
  - Injection site reaction [None]

NARRATIVE: CASE EVENT DATE: 1991
